FAERS Safety Report 10656955 (Version 1)
Quarter: 2014Q4

REPORT INFORMATION
  Report Type: Report from Study
  Country: CA (occurrence: None)
  Receive Date: 20141215
  Receipt Date: 20141215
  Transmission Date: 20150529
  Serious: Yes (Other)
  Sender: FDA-Public Use
  Company Number: CA-016424

PATIENT
  Age: 81 Year
  Sex: Male

DRUGS (11)
  1. FIRMAGON [Suspect]
     Active Substance: DEGARELIX ACETATE
     Indication: PROSTATE CANCER
     Route: 058
     Dates: start: 20110101
  2. CALCIUM [Concomitant]
     Active Substance: CALCIUM
  3. APO-SIMVASTATIN [Concomitant]
  4. TAMSULOSIN [Concomitant]
     Active Substance: TAMSULOSIN
  5. COD LIVER OIL [Concomitant]
     Active Substance: COD LIVER OIL
  6. CIPRALEX [Concomitant]
     Active Substance: ESCITALOPRAM OXALATE
  7. VITAMIN B12 [Concomitant]
     Active Substance: CYANOCOBALAMIN
  8. APO-LEVOCARB [Concomitant]
     Active Substance: CARBIDOPA\LEVODOPA
  9. ACTONEL [Concomitant]
     Active Substance: RISEDRONATE SODIUM
  10. GLUCOSAMINE SULFATE [Concomitant]
     Active Substance: GLUCOSAMINE SULFATE
  11. ASA [Concomitant]
     Active Substance: ASPIRIN

REACTIONS (8)
  - Fatigue [None]
  - Arthralgia [None]
  - Mobility decreased [None]
  - Prostatic specific antigen increased [None]
  - Pain in extremity [None]
  - Prostate cancer metastatic [None]
  - Bone cancer [None]
  - Metastases to spine [None]

NARRATIVE: CASE EVENT DATE: 201401
